FAERS Safety Report 19745098 (Version 1)
Quarter: 2021Q3

REPORT INFORMATION
  Report Type: Spontaneous
  Country: DE (occurrence: DE)
  Receive Date: 20210825
  Receipt Date: 20210825
  Transmission Date: 20211014
  Serious: Yes (Hospitalization, Other)
  Sender: FDA-Public Use
  Company Number: DE-MICRO LABS LIMITED-ML2021-02101

PATIENT
  Age: 75 Year
  Sex: Male
  Weight: 95 kg

DRUGS (3)
  1. DICLOFENAC SODIUM. [Suspect]
     Active Substance: DICLOFENAC SODIUM
  2. CANDESARTAN. [Concomitant]
     Active Substance: CANDESARTAN
  3. METAMIZOLE [Concomitant]
     Active Substance: METAMIZOLE

REACTIONS (5)
  - Pain [Unknown]
  - Abdominal pain [Unknown]
  - Nausea [Unknown]
  - Hypotension [Unknown]
  - Angina pectoris [Unknown]
